FAERS Safety Report 10399481 (Version 3)
Quarter: 2014Q4

REPORT INFORMATION
  Report Type: Spontaneous
  Country: JP (occurrence: JP)
  Receive Date: 20140821
  Receipt Date: 20141212
  Transmission Date: 20150528
  Serious: Yes (Death, Other)
  Sender: FDA-Public Use
  Company Number: JP-ASTRAZENECA-2014SE61758

PATIENT
  Sex: Female

DRUGS (4)
  1. STOMACHICS [Concomitant]
  2. SEROQUEL [Suspect]
     Active Substance: QUETIAPINE FUMARATE
     Route: 048
  3. CREMIN [Concomitant]
     Route: 048
  4. DIGESTIVES [Concomitant]

REACTIONS (2)
  - Rash generalised [Recovering/Resolving]
  - Myocardial infarction [Fatal]
